FAERS Safety Report 9912468 (Version 1)
Quarter: 2014Q1

REPORT INFORMATION
  Report Type: Report from Study
  Country: JP (occurrence: JP)
  Receive Date: 20140220
  Receipt Date: 20140220
  Transmission Date: 20141002
  Serious: Yes (Hospitalization)
  Sender: FDA-Public Use
  Company Number: JP-BRISTOL-MYERS SQUIBB COMPANY-20203774

PATIENT
  Age: 41 Year
  Sex: Male

DRUGS (8)
  1. CARBOPLATIN [Suspect]
     Indication: NON-SMALL CELL LUNG CANCER
     Dosage: 1DF=780 MG?580 MG 11DEC2013
     Route: 042
     Dates: start: 20131024
  2. PACLITAXEL [Suspect]
     Indication: NON-SMALL CELL LUNG CANCER
     Dosage: 1 DF=300 MG?230 MG 11DEC13
     Route: 042
     Dates: start: 20131024
  3. LOXONIN [Concomitant]
     Indication: TUMOUR PAIN
     Route: 048
  4. MUCOSTA [Concomitant]
     Indication: PROPHYLAXIS AGAINST GASTROINTESTINAL ULCER
     Route: 048
  5. NEXIUM [Concomitant]
     Indication: PROPHYLAXIS AGAINST GASTROINTESTINAL ULCER
     Route: 048
  6. MAGMITT [Concomitant]
     Indication: CONSTIPATION
     Route: 048
  7. CALCIUM + MAGNESIUM [Concomitant]
     Dosage: 1 DF= 2 TABS?ONGOING
     Route: 048
     Dates: start: 20131115
  8. VITAMIN D [Concomitant]
     Dosage: 1 DF= 2 TABS
     Route: 048
     Dates: start: 20131115

REACTIONS (1)
  - Transient ischaemic attack [Recovered/Resolved]
